FAERS Safety Report 23650095 (Version 1)
Quarter: 2024Q1

REPORT INFORMATION
  Report Type: Other
  Country: US (occurrence: US)
  Receive Date: 20240319
  Receipt Date: 20240319
  Transmission Date: 20240409
  Serious: Yes (Other)
  Sender: FDA-Public Use
  Company Number: US-BoehringerIngelheim-2024-BI-014196

PATIENT
  Age: 54 Year
  Sex: Female

DRUGS (5)
  1. ALTEPLASE [Suspect]
     Active Substance: ALTEPLASE
     Indication: Ischaemic stroke
     Dosage: UNK
     Route: 042
  2. CEFTRIAXONE [Concomitant]
     Active Substance: CEFTRIAXONE\CEFTRIAXONE SODIUM
  3. VANCOMYCIN [Concomitant]
     Active Substance: VANCOMYCIN
  4. PIPERACILLIN [Concomitant]
     Active Substance: PIPERACILLIN
  5. TAZOBACTAM [Concomitant]
     Active Substance: TAZOBACTAM

REACTIONS (2)
  - Post procedural haemorrhage [Recovering/Resolving]
  - Streptococcal endocarditis [Recovering/Resolving]
